FAERS Safety Report 15643538 (Version 2)
Quarter: 2019Q1

REPORT INFORMATION
  Report Type: Report from Study
  Country: IT (occurrence: IT)
  Receive Date: 20181121
  Receipt Date: 20190125
  Transmission Date: 20190417
  Serious: Yes (Hospitalization)
  Sender: FDA-Public Use
  Company Number: IT-ELI_LILLY_AND_COMPANY-IT201811005710

PATIENT
  Sex: Female

DRUGS (2)
  1. TERIPARATIDE [Suspect]
     Active Substance: TERIPARATIDE
     Indication: PRODUCT USED FOR UNKNOWN INDICATION
     Dosage: UNK UNK, UNKNOWN
     Route: 065
     Dates: start: 201806
  2. PANTOPRAZOLE [Concomitant]
     Active Substance: PANTOPRAZOLE
     Indication: PRODUCT USED FOR UNKNOWN INDICATION

REACTIONS (11)
  - Musculoskeletal stiffness [Unknown]
  - Sensory loss [Unknown]
  - Headache [Unknown]
  - Incorrect product administration duration [Unknown]
  - Muscular weakness [Unknown]
  - Pain in extremity [Unknown]
  - Dizziness [Unknown]
  - Cerebral thrombosis [Unknown]
  - Balance disorder [Unknown]
  - Photopsia [Unknown]
  - Eye pain [Unknown]
